FAERS Safety Report 9461489 (Version 2)
Quarter: 2014Q2

REPORT INFORMATION
  Report Type: Spontaneous
  Country: JP (occurrence: JP)
  Receive Date: 20130816
  Receipt Date: 20140402
  Transmission Date: 20141212
  Serious: Yes (Other)
  Sender: FDA-Public Use
  Company Number: PHHY2013JP087572

PATIENT
  Age: 60 Year
  Sex: Female
  Weight: 65 kg

DRUGS (6)
  1. CERTICAN [Suspect]
     Indication: PROPHYLAXIS AGAINST TRANSPLANT REJECTION
     Dosage: 2 MG, DAILY
     Route: 048
  2. CERTICAN [Suspect]
     Dosage: 1 MG, DAILY
     Route: 048
     Dates: start: 20130809
  3. GRACEPTOR [Concomitant]
     Indication: RENAL TRANSPLANT
     Dosage: 2 MG, DAILY
     Route: 048
  4. RITUXAN [Concomitant]
     Dosage: UNK FOR EIGHT WEEKS
  5. CORTICOSTEROIDS [Concomitant]
     Dosage: 6 MG, DAILY
  6. CORTICOSTEROIDS [Concomitant]
     Dosage: 4 MG, DAILY
     Dates: start: 20130809

REACTIONS (4)
  - Lung disorder [Recovering/Resolving]
  - Lipid metabolism disorder [Unknown]
  - Glycosylated haemoglobin increased [Unknown]
  - Weight increased [Unknown]
